FAERS Safety Report 19500995 (Version 1)
Quarter: 2021Q3

REPORT INFORMATION
  Report Type: Spontaneous
  Country: US (occurrence: US)
  Receive Date: 20210706
  Receipt Date: 20210706
  Transmission Date: 20211014
  Serious: Yes (Death)
  Sender: FDA-Public Use
  Company Number: None

PATIENT
  Age: 78 Year
  Sex: Male
  Weight: 98.9 kg

DRUGS (24)
  1. ALLOPURINOL. [Concomitant]
     Active Substance: ALLOPURINOL
  2. ASCORBIC ACID. [Concomitant]
     Active Substance: ASCORBIC ACID
  3. CLOPIDOGREL [Concomitant]
     Active Substance: CLOPIDOGREL BISULFATE
  4. HUMALOG [Concomitant]
     Active Substance: INSULIN LISPRO
  5. NITROGLYCERIN. [Concomitant]
     Active Substance: NITROGLYCERIN
  6. TORSEMIDE. [Concomitant]
     Active Substance: TORSEMIDE
  7. PROCHLORPERAZINE. [Suspect]
     Active Substance: PROCHLORPERAZINE
     Indication: VOMITING
     Route: 048
     Dates: start: 20210524, end: 20210706
  8. PROCHLORPERAZINE. [Suspect]
     Active Substance: PROCHLORPERAZINE
     Indication: NAUSEA
     Route: 048
     Dates: start: 20210524, end: 20210706
  9. VITAMIN D [Concomitant]
     Active Substance: VITAMIN D NOS
  10. ATORVASTATIN [Concomitant]
     Active Substance: ATORVASTATIN
  11. ATOVAQUONE. [Concomitant]
     Active Substance: ATOVAQUONE
  12. DIPHENHYDRAMINE. [Concomitant]
     Active Substance: DIPHENHYDRAMINE
  13. FUROSEMIDE. [Concomitant]
     Active Substance: FUROSEMIDE
  14. HYDROCODONE?ACETAMINOPHEN [Concomitant]
     Active Substance: ACETAMINOPHEN\HYDROCODONE
  15. ISOSORBIDE. [Concomitant]
     Active Substance: ISOSORBIDE
  16. ONDANSETRON [Suspect]
     Active Substance: ONDANSETRON
     Indication: NAUSEA
     Route: 048
     Dates: start: 20210524, end: 20210706
  17. LANTUS [Concomitant]
     Active Substance: INSULIN GLARGINE
  18. ACYCLOVIR. [Concomitant]
     Active Substance: ACYCLOVIR
  19. COENZYME Q10 [Concomitant]
     Active Substance: DIETARY SUPPLEMENT\UBIDECARENONE
  20. VENCLEXTA [Concomitant]
     Active Substance: VENETOCLAX
  21. CARVEDILOL. [Concomitant]
     Active Substance: CARVEDILOL
  22. IRON [Concomitant]
     Active Substance: IRON
  23. MULTIVITAMIN [Concomitant]
     Active Substance: VITAMINS
  24. STOOL SOFTENER (DOCUSATE) [Concomitant]
     Active Substance: DOCUSATE

REACTIONS (1)
  - Death [None]

NARRATIVE: CASE EVENT DATE: 20210706
